FAERS Safety Report 5772014-0 (Version None)
Quarter: 2008Q2

REPORT INFORMATION
  Report Type: 
  Country: None (occurrence: None)
  Receive Date: 20080611
  Receipt Date: 20080527
  Transmission Date: 20081010
  Serious: Yes (Other)
  Sender: FDA-Public Use
  Company Number: ENT 2008-0080

PATIENT
  Sex: Female

DRUGS (8)
  1. COMTAN [Suspect]
     Indication: PARKINSON'S DISEASE
     Dosage: 200 MG (200 MG, 1 IN 1 D) ORAL
     Route: 048
     Dates: start: 20080513, end: 20080517
  2. RANITIDINE HCL [Concomitant]
  3. EUTHYROX [Concomitant]
  4. PROLOPA [Concomitant]
  5. SELEGILINE HCL [Concomitant]
  6. ASPIRIN [Concomitant]
  7. IRON POLYMALTOSE [Concomitant]
  8. NIFEDIPINE [Concomitant]

REACTIONS (13)
  - AGGRESSION [None]
  - ANGER [None]
  - DIARRHOEA [None]
  - DRY MOUTH [None]
  - DYSKINESIA [None]
  - FALL [None]
  - FEELING ABNORMAL [None]
  - HEAD INJURY [None]
  - MUSCLE RIGIDITY [None]
  - PYREXIA [None]
  - TIC [None]
  - TREMOR [None]
  - URINE OUTPUT DECREASED [None]
